FAERS Safety Report 5275763-6 (Version None)
Quarter: 2007Q1

REPORT INFORMATION
  Report Type: 
  Country: None (occurrence: None)
  Receive Date: 20070326
  Receipt Date: 20070315
  Transmission Date: 20070707
  Serious: Yes (Other)
  Sender: FDA-Public Use
  Company Number: JP-JPN-A200600551

PATIENT
  Age: 72 Year
  Sex: Female

DRUGS (2)
  1. PAXIL [Suspect]
     Indication: DEPRESSIVE SYMPTOM
     Dosage: 30MG PER DAY
     Route: 048
     Dates: start: 20050601, end: 20050901
  2. LIMAS [Concomitant]
     Route: 048

REACTIONS (8)
  - HYPERHIDROSIS [None]
  - IRRITABILITY [None]
  - MOROSE [None]
  - MYOCLONUS [None]
  - NEGATIVISM [None]
  - PYREXIA [None]
  - SEROTONIN SYNDROME [None]
  - TREMOR [None]
